FAERS Safety Report 9677629 (Version 2)
Quarter: 2014Q1

REPORT INFORMATION
  Report Type: Spontaneous
  Country: NL (occurrence: NL)
  Receive Date: 20131108
  Receipt Date: 20140226
  Transmission Date: 20141002
  Serious: Yes (Hospitalization)
  Sender: FDA-Public Use
  Company Number: NL-NOVOPROD-391763

PATIENT
  Age: 69 Year
  Sex: Male

DRUGS (5)
  1. NOVOMIX 30 FLEXPEN [Suspect]
     Indication: DIABETES MELLITUS
     Dosage: UNK
     Route: 058
     Dates: start: 20061110
  2. COVERAM [Concomitant]
     Dosage: UNK (10/10)
     Route: 065
  3. ATORVASTATIN [Concomitant]
     Dosage: UNK (20 MG)
     Route: 065
  4. METOPROLOL [Concomitant]
     Dosage: UNK (100 MG,  (METOPROLOL RETARD))
     Route: 065
  5. HYDROCHLOROTHIAZIDE [Concomitant]
     Dosage: UNK  (25 MG)
     Route: 065

REACTIONS (1)
  - Postictal paralysis [Recovered/Resolved with Sequelae]
